FAERS Safety Report 16949950 (Version 2)
Quarter: 2020Q1

REPORT INFORMATION
  Report Type: Spontaneous
  Country: BR (occurrence: BR)
  Receive Date: 20191023
  Receipt Date: 20200219
  Transmission Date: 20200409
  Serious: Yes (Other)
  Sender: FDA-Public Use
  Company Number: NVSC2019BR010312

PATIENT
  Sex: Male

DRUGS (1)
  1. COSENTYX [Suspect]
     Active Substance: SECUKINUMAB
     Indication: PRODUCT USED FOR UNKNOWN INDICATION
     Dosage: UNK
     Route: 065
     Dates: start: 201609

REACTIONS (5)
  - Joint effusion [Unknown]
  - Joint effusion [Unknown]
  - Chondromalacia [Unknown]
  - Acute myocardial infarction [Unknown]
  - Back pain [Unknown]

NARRATIVE: CASE EVENT DATE: 201611
